FAERS Safety Report 15762418 (Version 2)
Quarter: 2019Q1

REPORT INFORMATION
  Report Type: Report from Study
  Country: CA (occurrence: CA)
  Receive Date: 20181226
  Receipt Date: 20190102
  Transmission Date: 20190417
  Serious: Yes (Other)
  Sender: FDA-Public Use
  Company Number: CA-JNJFOC-20180819664

PATIENT
  Age: 47 Year
  Sex: Female
  Weight: 59.2 kg

DRUGS (2)
  1. STELARA [Suspect]
     Active Substance: USTEKINUMAB
     Indication: CROHN^S DISEASE
     Route: 058
     Dates: start: 20170912
  2. STELARA [Suspect]
     Active Substance: USTEKINUMAB
     Indication: CROHN^S DISEASE
     Route: 058

REACTIONS (12)
  - Constipation [Recovered/Resolved]
  - Pneumonia [Unknown]
  - Rectal haemorrhage [Unknown]
  - Diarrhoea [Not Recovered/Not Resolved]
  - Product use issue [Unknown]
  - Bronchitis [Unknown]
  - Influenza [Unknown]
  - Abdominal pain [Recovered/Resolved]
  - Off label use [Unknown]
  - Urinary tract infection [Unknown]
  - Faecal calprotectin [Not Recovered/Not Resolved]
  - Mucous stools [Unknown]

NARRATIVE: CASE EVENT DATE: 20170912
